FAERS Safety Report 5072898-8 (Version None)
Quarter: 2006Q3

REPORT INFORMATION
  Report Type: 
  Country: None (occurrence: None)
  Receive Date: 20060807
  Receipt Date: 20060803
  Transmission Date: 20061208
  Serious: Yes (Hospitalization)
  Sender: FDA-Public Use
  Company Number: AU-BOEHRINGER INGELHEIM PHARMACEUTICALS, INC.-2006-BP-08906AU

PATIENT
  Age: 63 Year
  Sex: Female

DRUGS (11)
  1. MOBIC [Suspect]
  2. AVAPRO [Suspect]
  3. ARAVA [Suspect]
     Indication: RHEUMATOID ARTHRITIS
     Route: 048
     Dates: start: 20050214
  4. METHOTREXATE [Suspect]
  5. ZOCOR [Concomitant]
  6. ZINC [Concomitant]
  7. PARIET [Concomitant]
  8. IRON [Concomitant]
  9. PROTHIADEN (DOTHEPIN) [Concomitant]
  10. PSYLLIUM HYDROPHILIC MUCILLOID [Concomitant]
  11. SALAZOPYRIN [Concomitant]

REACTIONS (1)
  - VIRAL INFECTION [None]
